FAERS Safety Report 4431332-9 (Version None)
Quarter: 2004Q3

REPORT INFORMATION
  Report Type: 
  Country: None (occurrence: None)
  Receive Date: 20040824
  Receipt Date: 20040302
  Transmission Date: 20050211
  Serious: No
  Sender: FDA-Public Use
  Company Number: US-MERCK-0403USA00236M

PATIENT
  Age: 28 Year
  Sex: Female

DRUGS (7)
  1. ZYRTEC [Concomitant]
     Route: 065
  2. NEXIUM [Concomitant]
     Route: 065
  3. PEPCID [Concomitant]
     Route: 065
  4. ADVAIR DISKUS 100/50 [Concomitant]
     Route: 065
  5. SINGULAIR [Suspect]
     Indication: ASTHMA
     Route: 048
     Dates: start: 20010101, end: 20031114
  6. PREDNISONE [Concomitant]
     Route: 065
  7. MAXALT [Suspect]
     Route: 065
     Dates: end: 20031114

REACTIONS (5)
  - DIARRHOEA [None]
  - DRUG EXPOSURE DURING PREGNANCY [None]
  - POSTPARTUM HAEMORRHAGE [None]
  - PREMATURE LABOUR [None]
  - UPPER RESPIRATORY TRACT INFECTION [None]
